FAERS Safety Report 5491656-3 (Version None)
Quarter: 2007Q4

REPORT INFORMATION
  Report Type: 
  Country: None (occurrence: None)
  Receive Date: 20071022
  Receipt Date: 20071010
  Transmission Date: 20080405
  Serious: Yes (Hospitalization)
  Sender: FDA-Public Use
  Company Number: BR-JNJFOC-20071003131

PATIENT
  Age: 23 Year
  Sex: Female
  Weight: 50 kg

DRUGS (2)
  1. ORTHO EVRA [Suspect]
     Indication: CONTRACEPTION
     Route: 062
  2. INSULIN [Concomitant]
     Indication: DIABETES MELLITUS
     Dosage: 44 UNITS IN THE MORNING AND 8 UNITS IN THE EVENINGS

REACTIONS (5)
  - HYPOGLYCAEMIA [None]
  - INAPPROPRIATE SCHEDULE OF DRUG ADMINISTRATION [None]
  - METRORRHAGIA [None]
  - NAUSEA [None]
  - VOMITING [None]
